FAERS Safety Report 5524148-3 (Version None)
Quarter: 2007Q4

REPORT INFORMATION
  Report Type: 
  Country: None (occurrence: None)
  Receive Date: 20071121
  Receipt Date: 20071109
  Transmission Date: 20080405
  Serious: Yes (Other)
  Sender: FDA-Public Use
  Company Number: US-PFIZER INC-2007095289

PATIENT
  Sex: Female

DRUGS (5)
  1. DILANTIN [Suspect]
     Indication: CONVULSION
  2. SYNTHROID [Concomitant]
  3. FOLIC ACID [Concomitant]
  4. ALL OTHER THERAPEUTIC PRODUCTS [Concomitant]
  5. MELOXICAM [Concomitant]

REACTIONS (3)
  - BLISTER [None]
  - PETECHIAE [None]
  - SKIN IRRITATION [None]
